FAERS Safety Report 5227219-4 (Version None)
Quarter: 2007Q1

REPORT INFORMATION
  Report Type: 
  Country: None (occurrence: None)
  Receive Date: 20070202
  Receipt Date: 20070125
  Transmission Date: 20070707
  Serious: Yes (Hospitalization)
  Sender: FDA-Public Use
  Company Number: FR-GLAXOSMITHKLINE-B0455968A

PATIENT
  Age: 59 Year
  Sex: Male
  Weight: 73 kg

DRUGS (5)
  1. ZOFRAN [Suspect]
     Dosage: 8MG PER DAY
     Route: 048
     Dates: start: 20060705, end: 20060706
  2. ELVORINE [Suspect]
     Dosage: 179MG PER DAY
     Route: 042
     Dates: start: 20060705, end: 20060706
  3. FLUOROURACIL [Suspect]
     Dosage: 2870MG CUMULATIVE DOSE
     Route: 042
     Dates: start: 20060705, end: 20060706
  4. CAMPTOSAR [Suspect]
     Dosage: 260MG CUMULATIVE DOSE
     Route: 042
     Dates: start: 20060705, end: 20060706
  5. CORTICOID [Suspect]
     Route: 065
     Dates: start: 20060701

REACTIONS (6)
  - ENTEROBACTER SEPSIS [None]
  - HYPERBILIRUBINAEMIA [None]
  - JAUNDICE [None]
  - MICROCYTIC ANAEMIA [None]
  - PROTHROMBIN LEVEL DECREASED [None]
  - THROMBOCYTOPENIA [None]
